FAERS Safety Report 6016346-X (Version None)
Quarter: 2008Q4

REPORT INFORMATION
  Report Type: 
  Country: None (occurrence: None)
  Receive Date: 20081222
  Receipt Date: 20081217
  Transmission Date: 20090506
  Serious: Yes (Hospitalization)
  Sender: FDA-Public Use
  Company Number: US-JNJFOC-20081205101

PATIENT
  Sex: Female
  Weight: 46.04 kg

DRUGS (1)
  1. RAZADYNE ER [Suspect]
     Indication: DRUG USE FOR UNKNOWN INDICATION
     Route: 048

REACTIONS (2)
  - DYSPHAGIA [None]
  - PNEUMONIA [None]
